FAERS Safety Report 10662335 (Version 2)
Quarter: 2015Q1

REPORT INFORMATION
  Report Type: Spontaneous
  Country: US (occurrence: US)
  Receive Date: 20141218
  Receipt Date: 20150120
  Transmission Date: 20150720
  Serious: Yes (Hospitalization)
  Sender: FDA-Public Use
  Company Number: US-BAUSCH-BL-2014-010553

PATIENT
  Age: 64 Year
  Sex: Female

DRUGS (1)
  1. XENAZINE [Suspect]
     Active Substance: TETRABENAZINE
     Indication: HUNTINGTON^S DISEASE
     Route: 048
     Dates: start: 20110427

REACTIONS (4)
  - Mental disorder [Unknown]
  - Eating disorder [Unknown]
  - Abnormal behaviour [Unknown]
  - Repetitive speech [Unknown]

NARRATIVE: CASE EVENT DATE: 20141113
